FAERS Safety Report 7490589-0 (Version None)
Quarter: 2011Q2

REPORT INFORMATION
  Report Type: 
  Country: None (occurrence: None)
  Receive Date: 20110512
  Receipt Date: 20110506
  Transmission Date: 20111010
  Serious: Yes (Death)
  Sender: FDA-Public Use
  Company Number: 1000020738

PATIENT
  Age: 26 Year
  Sex: Male

DRUGS (9)
  1. OXYCODONE HCL [Suspect]
  2. MORPHINE [Suspect]
  3. XANAX [Suspect]
  4. QUETIAPINE FUMARATE [Suspect]
  5. ESCITALOPRAM [Suspect]
  6. COCAINE (COCAINE) [Suspect]
  7. IBUPROFEN [Suspect]
  8. THC-COOH (CANNABIS) [Suspect]
  9. HYDROXYZINE [Suspect]

REACTIONS (1)
  - TOXICITY TO VARIOUS AGENTS [None]
